FAERS Safety Report 25996111 (Version 1)
Quarter: 2025Q4

REPORT INFORMATION
  Report Type: Spontaneous
  Country: JP (occurrence: JP)
  Receive Date: 20251104
  Receipt Date: 20251104
  Transmission Date: 20260117
  Serious: Yes (Other)
  Sender: AMGEN
  Company Number: JP-KISSEI-TV20240786_P_1

PATIENT
  Age: 75 Year
  Sex: Male
  Weight: 76.4 kg

DRUGS (10)
  1. TAVNEOS [Suspect]
     Active Substance: AVACOPAN
     Indication: Microscopic polyangiitis
     Dosage: 20 MG, QD
     Route: 048
     Dates: start: 20240412, end: 20240425
  2. TAVNEOS [Suspect]
     Active Substance: AVACOPAN
     Dosage: 40 MG, QD
     Route: 048
     Dates: start: 20240426, end: 20240501
  3. TAVNEOS [Suspect]
     Active Substance: AVACOPAN
     Dosage: 60 MG, QD
     Route: 048
     Dates: start: 20240502, end: 20240816
  4. BOS TAURUS ADRENAL CORTEX CORTICOSTEROIDS [Concomitant]
     Active Substance: BOS TAURUS ADRENAL CORTEX CORTICOSTEROIDS
     Dosage: 1 MG/KG
  5. BOS TAURUS ADRENAL CORTEX CORTICOSTEROIDS [Concomitant]
     Active Substance: BOS TAURUS ADRENAL CORTEX CORTICOSTEROIDS
     Dosage: UNK
  6. BOS TAURUS ADRENAL CORTEX CORTICOSTEROIDS [Concomitant]
     Active Substance: BOS TAURUS ADRENAL CORTEX CORTICOSTEROIDS
     Dosage: 10 MG, QD
  7. RITUXIMAB [Concomitant]
     Active Substance: RITUXIMAB
     Dosage: UNK
     Route: 040
  8. RITUXIMAB [Concomitant]
     Active Substance: RITUXIMAB
     Dosage: UNK
     Route: 040
  9. RITUXIMAB [Concomitant]
     Active Substance: RITUXIMAB
     Dosage: UNK
     Route: 040
  10. RITUXIMAB [Concomitant]
     Active Substance: RITUXIMAB
     Dosage: UNK
     Route: 040

REACTIONS (2)
  - Alcoholic liver disease [Unknown]
  - Underdose [Unknown]

NARRATIVE: CASE EVENT DATE: 20240101
